FAERS Safety Report 6186989-1 (Version None)
Quarter: 2009Q2

REPORT INFORMATION
  Report Type: 
  Country: None (occurrence: None)
  Receive Date: 20090508
  Receipt Date: 20090508
  Transmission Date: 20091009
  Serious: No
  Sender: FDA-Public Use
  Company Number: None

PATIENT
  Age: 8 Year
  Weight: 36 kg

DRUGS (2)
  1. STRATTERA [Suspect]
     Indication: ABNORMAL BEHAVIOUR
     Dates: start: 20080116, end: 20090506
  2. STRATTERA [Suspect]
     Indication: DISTURBANCE IN ATTENTION
     Dates: start: 20080116, end: 20090506

REACTIONS (1)
  - DEAFNESS NEUROSENSORY [None]
